FAERS Safety Report 10359201 (Version 1)
Quarter: 2014Q3

REPORT INFORMATION
  Report Type: Spontaneous
  Country: US (occurrence: None)
  Receive Date: 20140731
  Receipt Date: 20140731
  Transmission Date: 20150326
  Serious: Yes (Other)
  Sender: FDA-Public Use
  Company Number: None

PATIENT
  Age: 71 Year
  Sex: Male

DRUGS (18)
  1. VITAMIN E [Concomitant]
     Active Substance: .ALPHA.-TOCOPHEROL
  2. MAGNESIUM [Concomitant]
     Active Substance: MAGNESIUM
  3. VITAMIN C [Concomitant]
     Active Substance: ASCORBIC ACID
  4. MIRAPEX ER [Suspect]
     Active Substance: PRAMIPEXOLE DIHYDROCHLORIDE
     Indication: PRODUCT USED FOR UNKNOWN INDICATION
     Dosage: 1 TABNLET
     Route: 048
     Dates: start: 20140703, end: 20140705
  5. FENOFIBRATE. [Concomitant]
     Active Substance: FENOFIBRATE
  6. LOVAZA [Concomitant]
     Active Substance: OMEGA-3-ACID ETHYL ESTERS
  7. BENICAR [Concomitant]
     Active Substance: OLMESARTAN MEDOXOMIL
  8. CELEBREX [Concomitant]
     Active Substance: CELECOXIB
  9. METFORMIN [Concomitant]
     Active Substance: METFORMIN HYDROCHLORIDE
  10. SELEGILINE [Concomitant]
     Active Substance: SELEGILINE
  11. VITAMIN B12 [Concomitant]
     Active Substance: CYANOCOBALAMIN
  12. VITAMIN D3 [Concomitant]
     Active Substance: CHOLECALCIFEROL
  13. CARB/LEVO [Concomitant]
     Active Substance: CARBIDOPA\LEVODOPA
  14. FINASTERIDE. [Concomitant]
     Active Substance: FINASTERIDE
  15. METOPROLOL [Concomitant]
     Active Substance: METOPROLOL
  16. ASPIRIN. [Concomitant]
     Active Substance: ASPIRIN
  17. CRESTOR [Concomitant]
     Active Substance: ROSUVASTATIN CALCIUM
  18. LISINOPRIL. [Concomitant]
     Active Substance: LISINOPRIL

REACTIONS (7)
  - Dizziness [None]
  - Tremor [None]
  - Arthralgia [None]
  - Nausea [None]
  - Inappropriate schedule of drug administration [None]
  - Incorrect dose administered [None]
  - Headache [None]

NARRATIVE: CASE EVENT DATE: 20140705
